FAERS Safety Report 23623295 (Version 1)
Quarter: 2024Q1

REPORT INFORMATION
  Report Type: Spontaneous
  Country: FR (occurrence: FR)
  Receive Date: 20240312
  Receipt Date: 20240312
  Transmission Date: 20240409
  Serious: Yes (Life-Threatening)
  Sender: FDA-Public Use
  Company Number: None

PATIENT
  Age: 17 Year
  Sex: Female
  Weight: 52 kg

DRUGS (3)
  1. LAMOTRIGINE [Suspect]
     Active Substance: LAMOTRIGINE
     Indication: Product used for unknown indication
     Dosage: 300 MILLIGRAM, TOTAL
     Route: 048
     Dates: start: 20240213, end: 20240213
  2. VALPROATE SODIUM [Suspect]
     Active Substance: VALPROATE SODIUM
     Indication: Product used for unknown indication
     Dosage: 30000 MILLIGRAM, TOTAL
     Route: 048
     Dates: start: 20240213, end: 20240213
  3. INSULIN NOS [Concomitant]
     Active Substance: INSULIN NOS
     Dosage: UNK
     Route: 065

REACTIONS (4)
  - Metabolic acidosis [Recovered/Resolved]
  - Hypotension [Recovered/Resolved]
  - Poisoning deliberate [Recovered/Resolved]
  - Coma [Recovered/Resolved]

NARRATIVE: CASE EVENT DATE: 20240213
